FAERS Safety Report 21801298 (Version 1)
Quarter: 2022Q4

REPORT INFORMATION
  Report Type: Report from Study
  Country: US (occurrence: US)
  Receive Date: 20221230
  Receipt Date: 20221230
  Transmission Date: 20230113
  Serious: No
  Sender: FDA-Public Use
  Company Number: US-ACORDA-ACO_171489_2022

PATIENT
  Age: 61 Year
  Sex: Male

DRUGS (2)
  1. INBRIJA [Suspect]
     Active Substance: LEVODOPA
     Indication: Parkinson^s disease
     Dosage: 84 MILLIGRAMS, PRN (2 CAPSULES OF 42MG AS NEEDED) NOT TO EXCEED 5 DOSES PER DAY
     Dates: start: 20211215
  2. INBRIJA [Suspect]
     Active Substance: LEVODOPA
     Indication: On and off phenomenon

REACTIONS (7)
  - Memory impairment [Not Recovered/Not Resolved]
  - Device difficult to use [Unknown]
  - Underdose [Unknown]
  - Tremor [Not Recovered/Not Resolved]
  - Parkinson^s disease [Not Recovered/Not Resolved]
  - Choking sensation [Unknown]
  - Impulse-control disorder [Not Recovered/Not Resolved]

NARRATIVE: CASE EVENT DATE: 20211215
